FAERS Safety Report 5233515-7 (Version None)
Quarter: 2007Q1

REPORT INFORMATION
  Report Type: 
  Country: None (occurrence: None)
  Receive Date: 20061208
  Receipt Date: 20060313
  Transmission Date: 20070707
  Serious: Yes (Other)
  Sender: FDA-Public Use
  Company Number: 2006UW04225

PATIENT
  Age: 45 Year
  Weight: 69.399 kg

DRUGS (2)
  1. CRESTOR [Suspect]
     Indication: BLOOD CHOLESTEROL INCREASED
     Dates: start: 20060301, end: 20060311
  2. GLIPIZIDE [Concomitant]

REACTIONS (2)
  - CARDIAC FLUTTER [None]
  - MUSCLE SPASMS [None]
